FAERS Safety Report 9833483 (Version 1)
Quarter: 2014Q1

REPORT INFORMATION
  Report Type: Report from Study
  Country: US (occurrence: US)
  Receive Date: 20140122
  Receipt Date: 20140122
  Transmission Date: 20141002
  Serious: Yes (Other)
  Sender: FDA-Public Use
  Company Number: US-ROCHE-1332446

PATIENT
  Age: 52 Year
  Sex: Male

DRUGS (18)
  1. PEG-INTERFERON ALFA 2A [Suspect]
     Indication: HEPATITIS C
     Route: 058
  2. RIBASPHERE [Suspect]
     Indication: HEPATITIS C
     Route: 048
  3. VITAMIN E [Concomitant]
     Route: 065
     Dates: start: 20121003
  4. ZOLPIDEM TARTRATE [Concomitant]
     Route: 065
  5. TRAZODONE HCL [Concomitant]
     Route: 048
  6. VITAMIN A [Concomitant]
     Route: 048
  7. ZINC SULFATE [Concomitant]
     Route: 048
  8. OMEPRAZOLE [Concomitant]
     Route: 065
  9. CALCITROL [Concomitant]
     Route: 065
  10. LACTULOSE LIQ [Concomitant]
     Route: 065
  11. VITAMINE B12 ROCHE [Concomitant]
     Route: 065
     Dates: start: 20131003
  12. FOLIC ACID [Concomitant]
     Route: 048
  13. XIFAXAN [Concomitant]
     Route: 048
  14. VIAGRA [Concomitant]
     Route: 048
  15. FERROUS SULFATE [Concomitant]
     Route: 048
     Dates: start: 20131003
  16. PROCRIT [Concomitant]
     Route: 058
  17. FUROSEMIDE [Concomitant]
     Route: 065
  18. SPIRONOLACTONE [Concomitant]
     Route: 048
     Dates: start: 20131223

REACTIONS (25)
  - Thrombocytopenia [Unknown]
  - Oedema [Unknown]
  - Ascites [Unknown]
  - Hepatic failure [Unknown]
  - Proteinuria [Unknown]
  - Anaemia [Unknown]
  - Hepatic encephalopathy [Unknown]
  - Renal failure chronic [Unknown]
  - Hepatic cirrhosis [Unknown]
  - Diarrhoea [Unknown]
  - Hypothyroidism [Unknown]
  - Neutropenia [Unknown]
  - Weight decreased [Unknown]
  - Oesophagitis [Unknown]
  - Portal vein thrombosis [Unknown]
  - Alpha 1 foetoprotein abnormal [Unknown]
  - Duodenitis [Unknown]
  - Jaundice [Unknown]
  - Gastritis [Unknown]
  - Insomnia [Unknown]
  - Haematochezia [Unknown]
  - Fatigue [Unknown]
  - Liver function test abnormal [Unknown]
  - Diverticulum [Unknown]
  - Blood thyroid stimulating hormone increased [Unknown]
